FAERS Safety Report 16056380 (Version 1)
Quarter: 2019Q1

REPORT INFORMATION
  Report Type: Spontaneous
  Country: US (occurrence: US)
  Receive Date: 20190311
  Receipt Date: 20190311
  Transmission Date: 20190418
  Serious: Yes (Other)
  Sender: FDA-Public Use
  Company Number: US-CIPLA LTD.-2019US01283

PATIENT

DRUGS (2)
  1. RIZATRIPTAN. [Suspect]
     Active Substance: RIZATRIPTAN
     Indication: MIGRAINE
     Dosage: UNK, ADJUSTED DOSE
     Route: 065
  2. PROPRANOLOL [Concomitant]
     Active Substance: PROPRANOLOL HYDROCHLORIDE
     Indication: MIGRAINE
     Dosage: UNK
     Route: 065

REACTIONS (5)
  - Gastrointestinal necrosis [Recovered/Resolved]
  - Intestinal infarction [Recovered/Resolved]
  - Intestinal ulcer [Recovered/Resolved]
  - Pneumatosis intestinalis [Recovered/Resolved]
  - Intestinal ischaemia [Recovered/Resolved]
